FAERS Safety Report 23102892 (Version 1)
Quarter: 2023Q4

REPORT INFORMATION
  Report Type: Spontaneous
  Country: US (occurrence: None)
  Receive Date: 20231022
  Receipt Date: 20231022
  Transmission Date: 20240110
  Serious: Yes (Hospitalization)
  Sender: FDA-Public Use
  Company Number: None

PATIENT
  Age: 74 Year
  Sex: Male
  Weight: 75 kg

DRUGS (1)
  1. ALENDRONATE [Suspect]
     Active Substance: ALENDRONATE SODIUM
     Dosage: FREQUENCY : WEEKLY;?
     Route: 048
     Dates: start: 20220927, end: 20230322

REACTIONS (6)
  - Pneumonia aspiration [None]
  - Unresponsive to stimuli [None]
  - Hypoaesthesia [None]
  - Product dose omission in error [None]
  - Product administration error [None]
  - Hypopnoea [None]

NARRATIVE: CASE EVENT DATE: 20230322
